FAERS Safety Report 12549931 (Version 1)
Quarter: 2016Q3

REPORT INFORMATION
  Report Type: Spontaneous
  Country: US (occurrence: US)
  Receive Date: 20160712
  Receipt Date: 20160712
  Transmission Date: 20161109
  Serious: Yes (Death, Other)
  Sender: FDA-Public Use
  Company Number: US-ALKERMES INC.-ALK-2016-001767

PATIENT
  Age: 22 Year
  Sex: Female

DRUGS (1)
  1. VIVITROL [Suspect]
     Active Substance: NALTREXONE
     Indication: DRUG DEPENDENCE
     Dosage: 380 MG, QMO
     Route: 030
     Dates: start: 20160610

REACTIONS (9)
  - Palpitations [Unknown]
  - Drug abuse [Unknown]
  - Endocarditis [Fatal]
  - Cardiomegaly [Unknown]
  - Pulmonary embolism [Unknown]
  - Malaise [Not Recovered/Not Resolved]
  - Tremor [Unknown]
  - Pyrexia [Unknown]
  - Pneumonia [Fatal]

NARRATIVE: CASE EVENT DATE: 20160622
